FAERS Safety Report 5128706-X (Version None)
Quarter: 2006Q4

REPORT INFORMATION
  Report Type: 
  Country: None (occurrence: None)
  Receive Date: 20061017
  Receipt Date: 20061006
  Transmission Date: 20070319
  Serious: Yes (Other)
  Sender: FDA-Public Use
  Company Number: GB-AVENTIS-200620643GDDC

PATIENT
  Age: 34 Year
  Sex: Female
  Weight: 63 kg

DRUGS (2)
  1. METRONIDAZOLE [Suspect]
     Indication: ENDOMETRITIS
     Route: 048
     Dates: start: 20060804, end: 20060806
  2. CEFADROXIL [Concomitant]
     Indication: ENDOMETRITIS
     Route: 048
     Dates: start: 20060707, end: 20060714

REACTIONS (2)
  - DYSGEUSIA [None]
  - FOREIGN BODY TRAUMA [None]
